FAERS Safety Report 24049343 (Version 2)
Quarter: 2024Q3

REPORT INFORMATION
  Report Type: Other
  Country: IN (occurrence: IN)
  Receive Date: 20240704
  Receipt Date: 20240718
  Transmission Date: 20241017
  Serious: Yes (Death, Other)
  Sender: LUPIN
  Company Number: IN-LUPIN PHARMACEUTICALS INC.-2024-05573

PATIENT

DRUGS (2)
  1. TIOTROPIUM BROMIDE [Suspect]
     Active Substance: TIOTROPIUM BROMIDE
     Indication: Dyspnoea
     Dosage: UNK
     Route: 065
     Dates: start: 20231020
  2. BUDESONIDE\FORMOTEROL FUMARATE [Suspect]
     Active Substance: BUDESONIDE\FORMOTEROL FUMARATE
     Indication: Dyspnoea
     Dosage: UNK
     Route: 065
     Dates: start: 20231020

REACTIONS (2)
  - Death [Fatal]
  - Tuberculosis [Unknown]
